FAERS Safety Report 5960870-2 (Version None)
Quarter: 2008Q4

REPORT INFORMATION
  Report Type: 
  Country: None (occurrence: None)
  Receive Date: 20081118
  Receipt Date: 20081111
  Transmission Date: 20090506
  Serious: Yes (Death, Hospitalization)
  Sender: FDA-Public Use
  Company Number: 2008SP022942

PATIENT
  Age: 55 Year
  Sex: Male

DRUGS (2)
  1. POSACONAZOLE [Suspect]
     Indication: PROPHYLAXIS
     Dosage: 400 MG;BID;
  2. STEROIDS [Concomitant]

REACTIONS (13)
  - ASTHENIA [None]
  - CONVULSION [None]
  - DISEASE PROGRESSION [None]
  - EYE PAIN [None]
  - FACIAL PAIN [None]
  - FUNGUS CULTURE POSITIVE [None]
  - GASTROINTESTINAL HAEMORRHAGE [None]
  - NASAL CONGESTION [None]
  - NEUROLOGICAL DECOMPENSATION [None]
  - ORBITAL OEDEMA [None]
  - PYREXIA [None]
  - SKIN NECROSIS [None]
  - ZYGOMYCOSIS [None]
